FAERS Safety Report 4896131-2 (Version None)
Quarter: 2005Q4

REPORT INFORMATION
  Report Type: 
  Country: None (occurrence: None)
  Receive Date: 20051220
  Receipt Date: 20050817
  Transmission Date: 20060501
  Serious: Yes (Disabling, Other)
  Sender: FDA-Public Use
  Company Number: US145917

PATIENT
  Age: 76 Year
  Sex: Female
  Weight: 75.4 kg

DRUGS (2)
  1. ENBREL [Suspect]
     Indication: RHEUMATOID ARTHRITIS
     Dosage: 25 MG, 2 IN 1 WEEKS, SC
     Route: 058
  2. NSAIDS [Concomitant]

REACTIONS (2)
  - ANOREXIA [None]
  - NAUSEA [None]
